FAERS Safety Report 25716928 (Version 2)
Quarter: 2025Q4

REPORT INFORMATION
  Report Type: Spontaneous
  Country: US (occurrence: US)
  Receive Date: 20250822
  Receipt Date: 20251009
  Transmission Date: 20260118
  Serious: No
  Sender: DR REDDYS
  Company Number: US-DRL-USA-USA/2025/07/011584

PATIENT
  Age: 58 Year
  Sex: Female
  Weight: 55.79 kg

DRUGS (3)
  1. BUPRENORPHINE AND NALOXONE [Suspect]
     Active Substance: BUPRENORPHINE HYDROCHLORIDE\NALOXONE HYDROCHLORIDE
     Indication: Product used for unknown indication
     Route: 060
     Dates: start: 20250705
  2. SEROQUEL [Concomitant]
     Active Substance: QUETIAPINE FUMARATE
     Indication: Depression
     Route: 065
  3. EFFEXOR [Concomitant]
     Active Substance: VENLAFAXINE HYDROCHLORIDE
     Indication: Depression
     Route: 065

REACTIONS (6)
  - Product quality issue [Unknown]
  - Feeding disorder [Unknown]
  - Pain of skin [Unknown]
  - Product packaging issue [Unknown]
  - Vomiting [Unknown]
  - Incorrect dose administered [Unknown]
